FAERS Safety Report 10365242 (Version 1)
Quarter: 2014Q3

REPORT INFORMATION
  Report Type: Spontaneous
  Country: FR (occurrence: FR)
  Receive Date: 20140806
  Receipt Date: 20140806
  Transmission Date: 20150326
  Serious: Yes (Hospitalization)
  Sender: FDA-Public Use
  Company Number: FR-JNJFOC-20140720812

PATIENT
  Age: 57 Year
  Sex: Male

DRUGS (19)
  1. LANSOYL [Concomitant]
     Active Substance: MINERAL OIL
     Route: 065
  2. LOVENOX [Concomitant]
     Active Substance: ENOXAPARIN SODIUM
     Route: 065
  3. SPASFON [Concomitant]
     Active Substance: PHLOROGLUCINOL
     Route: 065
  4. MALOCIDE [Suspect]
     Active Substance: PYRIMETHAMINE
     Indication: CEREBRAL TOXOPLASMOSIS
     Route: 048
     Dates: start: 20140517
  5. CLINDAMYCIN [Suspect]
     Active Substance: CLINDAMYCIN\CLINDAMYCIN PHOSPHATE
     Indication: CEREBRAL TOXOPLASMOSIS
     Route: 048
     Dates: start: 20140610
  6. PRIMPERAN [Concomitant]
     Active Substance: METOCLOPRAMIDE HYDROCHLORIDE
     Route: 065
  7. DEROXAT [Concomitant]
     Active Substance: PAROXETINE HYDROCHLORIDE
     Route: 065
  8. TRANSIPEG [Concomitant]
     Active Substance: POLYETHYLENE GLYCOL 3350
     Route: 065
  9. PREZISTA [Suspect]
     Active Substance: DARUNAVIR ETHANOLATE
     Indication: HIV INFECTION
     Route: 048
     Dates: start: 20140616
  10. KEPPRA [Suspect]
     Active Substance: LEVETIRACETAM
     Indication: GENERALISED TONIC-CLONIC SEIZURE
     Route: 048
     Dates: start: 20140526, end: 20140627
  11. NORVIR [Suspect]
     Active Substance: RITONAVIR
     Indication: HIV INFECTION
     Route: 048
     Dates: start: 20140616
  12. ISENTRESS [Suspect]
     Active Substance: RALTEGRAVIR POTASSIUM
     Indication: HIV INFECTION
     Route: 048
     Dates: start: 20140613
  13. TRUVADA [Suspect]
     Active Substance: EMTRICITABINE\TENOFOVIR DISOPROXIL FUMARATE
     Indication: HIV INFECTION
     Dosage: 200MG/245MG
     Route: 048
     Dates: start: 20140613
  14. XATRAL [Concomitant]
     Active Substance: ALFUZOSIN
     Route: 065
  15. BI-PROFENID [Concomitant]
     Active Substance: KETOPROFEN
     Route: 065
  16. LEDERFOLINE [Concomitant]
     Active Substance: LEUCOVORIN CALCIUM
     Route: 065
  17. OROZAMUDOL [Concomitant]
     Route: 065
  18. ACUPAN [Concomitant]
     Active Substance: NEFOPAM HYDROCHLORIDE
     Route: 065
  19. INEXIUM [Concomitant]
     Active Substance: ESOMEPRAZOLE
     Route: 065

REACTIONS (2)
  - Neutropenia [Not Recovered/Not Resolved]
  - Normochromic normocytic anaemia [Not Recovered/Not Resolved]

NARRATIVE: CASE EVENT DATE: 201406
